FAERS Safety Report 19269537 (Version 1)
Quarter: 2021Q2

REPORT INFORMATION
  Report Type: Report from Study
  Country: US (occurrence: US)
  Receive Date: 20210518
  Receipt Date: 20210518
  Transmission Date: 20210717
  Serious: No
  Sender: FDA-Public Use
  Company Number: US-REGENERON PHARMACEUTICALS, INC.-2021-44968

PATIENT

DRUGS (1)
  1. EVINACUMAB. [Suspect]
     Active Substance: EVINACUMAB
     Indication: TYPE IIA HYPERLIPIDAEMIA
     Dosage: 15 MG/KG, Q4W PER PROTOCOL
     Route: 042
     Dates: start: 202010

REACTIONS (1)
  - Low density lipoprotein increased [Not Recovered/Not Resolved]

NARRATIVE: CASE EVENT DATE: 202104
